FAERS Safety Report 4766204-3 (Version None)
Quarter: 2005Q3

REPORT INFORMATION
  Report Type: 
  Country: None (occurrence: None)
  Receive Date: 20050912
  Receipt Date: 20050519
  Transmission Date: 20060218
  Serious: Yes (Hospitalization, Other)
  Sender: FDA-Public Use
  Company Number: US-MERCK-0505USA02350

PATIENT
  Age: 71 Year
  Sex: Female
  Weight: 103 kg

DRUGS (7)
  1. VIOXX [Suspect]
     Indication: ARTHRITIS
     Route: 048
     Dates: start: 20000401, end: 20030127
  2. VIOXX [Suspect]
     Route: 048
     Dates: end: 20040901
  3. GLUCOTROL XL [Concomitant]
     Route: 065
  4. ASPIRIN [Concomitant]
     Indication: PROPHYLAXIS
     Route: 065
     Dates: start: 19920101
  5. LOPRESSOR [Concomitant]
     Route: 065
     Dates: start: 19920101
  6. ZESTRIL [Concomitant]
     Indication: HYPERTENSION
     Route: 065
     Dates: start: 19920101
  7. PREMARIN [Concomitant]
     Indication: HYSTERECTOMY
     Route: 065
     Dates: start: 19850101, end: 20040101

REACTIONS (35)
  - ANGINA UNSTABLE [None]
  - ANXIETY [None]
  - AORTIC VALVE STENOSIS [None]
  - ARRHYTHMIA [None]
  - ASTHMA [None]
  - BACK PAIN [None]
  - BARRETT'S OESOPHAGUS [None]
  - CARDIAC VALVE DISEASE [None]
  - CEREBRAL ATROPHY [None]
  - CEREBRAL INFARCTION [None]
  - CEREBROVASCULAR ACCIDENT [None]
  - CHEST DISCOMFORT [None]
  - CHEST PAIN [None]
  - CHRONIC OBSTRUCTIVE PULMONARY DISEASE [None]
  - CORONARY ARTERY ATHEROSCLEROSIS [None]
  - CORONARY ARTERY OCCLUSION [None]
  - DEPRESSION [None]
  - GASTRITIS EROSIVE [None]
  - GASTROOESOPHAGEAL REFLUX DISEASE [None]
  - GASTROOESOPHAGITIS [None]
  - HEART RATE IRREGULAR [None]
  - HYPERVENTILATION [None]
  - ISCHAEMIC CEREBRAL INFARCTION [None]
  - LOBAR PNEUMONIA [None]
  - MITRAL VALVE INCOMPETENCE [None]
  - NEPHROLITHIASIS [None]
  - POLYARTHRITIS [None]
  - POLYNEUROPATHY [None]
  - RENAL FAILURE [None]
  - SLEEP APNOEA SYNDROME [None]
  - SLEEP DISORDER [None]
  - SPINAL OSTEOARTHRITIS [None]
  - TRICUSPID VALVE INCOMPETENCE [None]
  - UMBILICAL HERNIA [None]
  - URINARY TRACT INFECTION [None]
